FAERS Safety Report 5838523-0 (Version None)
Quarter: 2008Q3

REPORT INFORMATION
  Report Type: 
  Country: None (occurrence: None)
  Receive Date: 20080808
  Receipt Date: 20080728
  Transmission Date: 20090109
  Serious: Yes (Life-Threatening, Hospitalization, Other)
  Sender: FDA-Public Use
  Company Number: US-ROCHE-575086

PATIENT
  Sex: Female
  Weight: 55.8 kg

DRUGS (7)
  1. BONIVA [Suspect]
     Indication: OSTEOPOROSIS
     Route: 048
     Dates: start: 20071210, end: 20080630
  2. BACTRIM [Concomitant]
     Dosage: FORM:DS
     Route: 048
  3. ALBUTEROL [Concomitant]
     Dosage: ROUTE: NEBULIZATION, FREQUENCY 1 PER 4 HOURS PRN.
     Dates: start: 20070712
  4. 1 CONCOMITANT DRUG [Concomitant]
     Dosage: ROUTE: NEBULISER. DRUG: BRAVANU
  5. LASIX [Concomitant]
     Indication: OEDEMA
     Dosage: FREQUENCY: PRN TWICE DAILY.
     Route: 048
     Dates: start: 20070801
  6. LIPITOR [Concomitant]
     Indication: HYPERLIPIDAEMIA
     Route: 048
     Dates: start: 20050225
  7. PREDNISONE [Concomitant]
     Route: 048
     Dates: start: 20050501

REACTIONS (7)
  - ABDOMINAL DISCOMFORT [None]
  - CHRONIC OBSTRUCTIVE PULMONARY DISEASE [None]
  - DIARRHOEA [None]
  - RESPIRATORY ACIDOSIS [None]
  - RESPIRATORY DEPRESSION [None]
  - RESPIRATORY DISTRESS [None]
  - RESPIRATORY FAILURE [None]
